FAERS Safety Report 4429833-2 (Version None)
Quarter: 2004Q3

REPORT INFORMATION
  Report Type: 
  Country: None (occurrence: None)
  Receive Date: 20040818
  Receipt Date: 20040818
  Transmission Date: 20050211
  Serious: Yes (Life-Threatening, Hospitalization)
  Sender: FDA-Public Use
  Company Number: None

PATIENT
  Age: 55 Year
  Sex: Male
  Weight: 86 kg

DRUGS (9)
  1. ALENDRONATE SODIUM [Suspect]
     Indication: OSTEOPOROSIS
     Dosage: 70MG ONCE/WEEK ORAL
     Route: 048
     Dates: start: 20040423, end: 20040714
  2. BUPROPION HCL [Concomitant]
  3. ISMO [Concomitant]
  4. INSULIN [Concomitant]
  5. OXYCODONE HCL [Concomitant]
  6. MORPHINE [Concomitant]
  7. ALPROSTADIL [Concomitant]
  8. GABAPENTIN [Concomitant]
  9. OMEPRAZOLE [Concomitant]

REACTIONS (5)
  - DIALYSIS [None]
  - GASTROINTESTINAL HAEMORRHAGE [None]
  - HYPERKALAEMIA [None]
  - OESOPHAGITIS [None]
  - SHOCK [None]
